FAERS Safety Report 6675803-3 (Version None)
Quarter: 2010Q2

REPORT INFORMATION
  Report Type: 
  Country: None (occurrence: None)
  Receive Date: 20100412
  Receipt Date: 20100408
  Transmission Date: 20101027
  Serious: Yes (Hospitalization)
  Sender: FDA-Public Use
  Company Number: US-BIOGENIDEC-2010BI011325

PATIENT
  Age: 62 Year
  Sex: Female

DRUGS (10)
  1. TYSABRI [Suspect]
     Indication: MULTIPLE SCLEROSIS
     Route: 042
     Dates: start: 20080501, end: 20091029
  2. PROTONIX [Concomitant]
  3. MULTI-VITAMIN [Concomitant]
     Indication: SUPPLEMENTATION THERAPY
  4. IRON [Concomitant]
     Indication: SUPPLEMENTATION THERAPY
  5. VITAMIN D [Concomitant]
     Indication: SUPPLEMENTATION THERAPY
  6. ESCITALOPRAM OXALATE [Concomitant]
     Indication: DEPRESSION
     Route: 048
  7. LOTREL [Concomitant]
     Indication: HYPERTENSION
     Route: 048
  8. AMANTADINE HCL [Concomitant]
     Route: 048
  9. METAXALONE [Concomitant]
     Indication: MUSCLE SPASMS
     Route: 048
  10. HYDROCODONE BITARTRATE [Concomitant]
     Indication: PAIN

REACTIONS (2)
  - OSTEONECROSIS [None]
  - PERIPROSTHETIC FRACTURE [None]
